FAERS Safety Report 22277578 (Version 1)
Quarter: 2023Q2

REPORT INFORMATION
  Report Type: Spontaneous
  Country: BG (occurrence: None)
  Receive Date: 20230503
  Receipt Date: 20230503
  Transmission Date: 20230722
  Serious: Yes (Other)
  Sender: FDA-Public Use
  Company Number: 2023A096959

PATIENT
  Age: 3706 Week
  Sex: Female
  Weight: 61 kg

DRUGS (5)
  1. BUDESONIDE\FORMOTEROL\GLYCOPYRRONIUM [Suspect]
     Active Substance: BUDESONIDE\FORMOTEROL\GLYCOPYRRONIUM
     Indication: Chronic obstructive pulmonary disease
     Route: 055
  2. RAMIPRIL [Concomitant]
     Active Substance: RAMIPRIL
  3. SPIRONOLACTONE [Concomitant]
     Active Substance: SPIRONOLACTONE
  4. TORSID [Concomitant]
  5. MOLSIDOMINE [Concomitant]
     Active Substance: MOLSIDOMINE

REACTIONS (10)
  - Acute coronary syndrome [Recovering/Resolving]
  - Myocardial ischaemia [Recovering/Resolving]
  - Arteriosclerosis coronary artery [Recovering/Resolving]
  - Conduction disorder [Recovering/Resolving]
  - Dyslipidaemia [Recovering/Resolving]
  - Hypertension [Recovering/Resolving]
  - Chronic kidney disease [Recovering/Resolving]
  - Calcinosis [Recovered/Resolved]
  - Peripheral embolism [Recovered/Resolved]
  - Thrombosis [Recovered/Resolved]

NARRATIVE: CASE EVENT DATE: 20221111
